FAERS Safety Report 8027093-7 (Version None)
Quarter: 2012Q1

REPORT INFORMATION
  Report Type: 
  Country: None (occurrence: None)
  Receive Date: 20120103
  Receipt Date: 20111219
  Transmission Date: 20120608
  Serious: Yes (Hospitalization)
  Sender: FDA-Public Use
  Company Number: 2011MA017904

PATIENT
  Age: 32 Year
  Sex: Male

DRUGS (16)
  1. FUROSEMIDE [Concomitant]
  2. SENNA [Concomitant]
  3. MAGNESIUM SULFATE [Concomitant]
  4. DOCUSATE SODIUM [Concomitant]
  5. PRONTODERM [Concomitant]
  6. PABRINEX [Concomitant]
  7. MAGNESIUM [Concomitant]
  8. METOCLOPRAMIDE [Concomitant]
  9. PROPOFOL [Concomitant]
  10. MIDAZOLAM [Concomitant]
  11. LEVETIRACETAM [Suspect]
     Indication: CONVULSION
     Dosage: 250 MG;BID
     Dates: start: 20111103, end: 20111103
  12. VANCOMYCIN [Suspect]
     Dosage: 1000 MG;BID;IV
     Route: 042
     Dates: start: 20111101, end: 20111107
  13. VALPROIC ACID [Suspect]
     Dosage: 300 MG;BID;IV
     Route: 042
     Dates: start: 20111031, end: 20111103
  14. CHLORHEXIDINE GLUCONATE [Concomitant]
  15. ALFENTANIL [Concomitant]
  16. OMEPRAZOLE [Concomitant]

REACTIONS (3)
  - TUBULOINTERSTITIAL NEPHRITIS [None]
  - DRUG RASH WITH EOSINOPHILIA AND SYSTEMIC SYMPTOMS [None]
  - HEPATITIS [None]
